FAERS Safety Report 19732160 (Version 3)
Quarter: 2021Q4

REPORT INFORMATION
  Report Type: Other
  Country: US (occurrence: None)
  Receive Date: 20210820
  Receipt Date: 20211222
  Transmission Date: 20220303
  Serious: Yes (Other)
  Sender: FDA-Public Use
  Company Number: US-ROCHE-2890587

PATIENT
  Sex: Male

DRUGS (2)
  1. ZELBORAF [Suspect]
     Active Substance: VEMURAFENIB
     Indication: Histiocytosis
     Dosage: TAKE 1 TABLET BY MOUTH DAILY?FIRST DOSE 19/NOV/2020
     Route: 048
     Dates: start: 20201119
  2. ZELBORAF [Suspect]
     Active Substance: VEMURAFENIB
     Indication: Iron deficiency

REACTIONS (2)
  - Myocardial infarction [Unknown]
  - Off label use [Unknown]
